FAERS Safety Report 14494101 (Version 1)
Quarter: 2018Q1

REPORT INFORMATION
  Report Type: Spontaneous
  Country: US (occurrence: US)
  Receive Date: 20180206
  Receipt Date: 20180206
  Transmission Date: 20180509
  Serious: No
  Sender: FDA-Public Use
  Company Number: US-AMGEN-USASP2017062698

PATIENT
  Sex: Male

DRUGS (5)
  1. CARBO [Concomitant]
     Dosage: UNK
  2. NEULASTA [Suspect]
     Active Substance: PEGFILGRASTIM
     Indication: NEUTROPENIA
     Dosage: 0.64 ML, UNK
     Route: 065
  3. VINORELBINE [Concomitant]
     Active Substance: VINORELBINE\VINORELBINE TARTRATE
     Dosage: UNK
  4. CISPLATIN. [Concomitant]
     Active Substance: CISPLATIN
     Dosage: UNK
  5. CLARITIN [Concomitant]
     Active Substance: LORATADINE
     Dosage: UNK

REACTIONS (5)
  - White blood cell count abnormal [Unknown]
  - Neutrophil count abnormal [Unknown]
  - Dyspnoea [Unknown]
  - Bone pain [Unknown]
  - Chest pain [Unknown]

NARRATIVE: CASE EVENT DATE: 2017
